FAERS Safety Report 6498026-X (Version None)
Quarter: 2009Q4

REPORT INFORMATION
  Report Type: 
  Country: None (occurrence: None)
  Receive Date: 20091215
  Receipt Date: 20091204
  Transmission Date: 20100525
  Serious: Yes (Other)
  Sender: FDA-Public Use
  Company Number: PHHY2009JP33612

PATIENT
  Sex: Male

DRUGS (9)
  1. AMN107 AMN+CAP [Suspect]
     Indication: CHRONIC MYELOID LEUKAEMIA
     Dosage: 800 MG DAILY
     Route: 048
     Dates: start: 20090508, end: 20090512
  2. AMN107 AMN+CAP [Suspect]
     Dosage: 800 MG DAILY
     Route: 048
     Dates: start: 20090522, end: 20090602
  3. AMN107 AMN+CAP [Suspect]
     Dosage: 400 MG DAILY
     Route: 048
     Dates: start: 20090612, end: 20090724
  4. AMN107 AMN+CAP [Suspect]
     Dosage: 400 MG/DAY
     Route: 048
     Dates: start: 20090807
  5. HYDREA [Concomitant]
     Indication: CHRONIC MYELOID LEUKAEMIA
     Dosage: 1000 MG, UNK
     Route: 048
     Dates: end: 20090508
  6. AMARYL [Concomitant]
     Indication: DIABETES MELLITUS
     Dosage: 1 MG, UNK
     Route: 048
     Dates: start: 20081217
  7. GLUCOBAY [Concomitant]
     Indication: DIABETES MELLITUS
     Dosage: 150 MG, UNK
     Route: 048
     Dates: start: 20080611
  8. SENNOSIDE [Concomitant]
     Indication: DIABETES MELLITUS
     Dosage: 24 MG, UNK
     Route: 048
     Dates: start: 20080402
  9. KAMAG G [Concomitant]
     Indication: DIABETES MELLITUS
     Dosage: 3.0 G, UNK
     Route: 048
     Dates: start: 20080402

REACTIONS (11)
  - ABDOMINAL DISCOMFORT [None]
  - ABDOMINAL DISTENSION [None]
  - ABDOMINAL PAIN UPPER [None]
  - BLOOD GLUCOSE INCREASED [None]
  - BLOOD PHOSPHORUS DECREASED [None]
  - DECREASED APPETITE [None]
  - ELECTROCARDIOGRAM QT PROLONGED [None]
  - PLATELET COUNT DECREASED [None]
  - RASH GENERALISED [None]
  - RASH PAPULAR [None]
  - WEIGHT DECREASED [None]
